FAERS Safety Report 14837765 (Version 1)
Quarter: 2018Q2

REPORT INFORMATION
  Report Type: Spontaneous
  Country: US (occurrence: US)
  Receive Date: 20180417
  Receipt Date: 20180417
  Transmission Date: 20180711
  Serious: Yes (Hospitalization, Disabling)
  Sender: FDA-Public Use
  Company Number: None

PATIENT
  Age: 29 Year
  Sex: Female
  Weight: 51.75 kg

DRUGS (5)
  1. IBUPROFEN. [Concomitant]
     Active Substance: IBUPROFEN
  2. DULOXETINE HCL DR 30MG [Suspect]
     Active Substance: DULOXETINE HYDROCHLORIDE
     Indication: ANXIETY
     Dosage: ?          QUANTITY:26 CAPSULE(S);?
     Route: 048
  3. LORDATINE [Concomitant]
  4. CBD [Concomitant]
     Active Substance: CANNABIDIOL
  5. DULOXETINE HCL DR 30MG [Suspect]
     Active Substance: DULOXETINE HYDROCHLORIDE
     Indication: DEPRESSION
     Dosage: ?          QUANTITY:26 CAPSULE(S);?
     Route: 048

REACTIONS (16)
  - Product substitution issue [None]
  - Product quality issue [None]
  - Libido decreased [None]
  - Urinary hesitation [None]
  - Visual impairment [None]
  - Speech disorder [None]
  - Alcoholism [None]
  - Crying [None]
  - Suicidal ideation [None]
  - Vibratory sense increased [None]
  - Depression [None]
  - Coordination abnormal [None]
  - Anhedonia [None]
  - Hypoaesthesia oral [None]
  - Tremor [None]
  - Anxiety [None]

NARRATIVE: CASE EVENT DATE: 20180208
